FAERS Safety Report 17200108 (Version 1)
Quarter: 2019Q4

REPORT INFORMATION
  Report Type: Spontaneous
  Country: BR (occurrence: BR)
  Receive Date: 20191226
  Receipt Date: 20191226
  Transmission Date: 20200122
  Serious: Yes (Other)
  Sender: FDA-Public Use
  Company Number: BR-EMD SERONO-9136482

PATIENT
  Sex: Male

DRUGS (2)
  1. GLIFAGE [Suspect]
     Active Substance: METFORMIN HYDROCHLORIDE
     Indication: TYPE 2 DIABETES MELLITUS
     Dosage: OLD FORMAT
     Route: 048
  2. GLIFAGE [Suspect]
     Active Substance: METFORMIN HYDROCHLORIDE
     Dosage: NEW FORMAT
     Route: 048

REACTIONS (5)
  - Diabetes mellitus inadequate control [Unknown]
  - Vision blurred [Unknown]
  - Drug ineffective [Unknown]
  - Malaise [Unknown]
  - Hypoaesthesia oral [Unknown]
